FAERS Safety Report 5700327-7 (Version None)
Quarter: 2008Q2

REPORT INFORMATION
  Report Type: 
  Country: None (occurrence: None)
  Receive Date: 20080410
  Receipt Date: 20080404
  Transmission Date: 20081010
  Serious: Yes (Hospitalization)
  Sender: FDA-Public Use
  Company Number: B0515775A

PATIENT
  Age: 22 Year
  Sex: Female

DRUGS (3)
  1. AUGMENTIN '125' [Suspect]
     Indication: PNEUMONIA
     Route: 065
     Dates: start: 20080201, end: 20080213
  2. CIPRALEX [Concomitant]
     Indication: DEPRESSION
  3. DESOGESTREL AND ETHINYL ESTRADIOL [Concomitant]

REACTIONS (6)
  - ABDOMINAL PAIN [None]
  - CLOSTRIDIAL INFECTION [None]
  - DIARRHOEA HAEMORRHAGIC [None]
  - NAUSEA [None]
  - PSEUDOMEMBRANOUS COLITIS [None]
  - VOMITING [None]
